FAERS Safety Report 4322848-4 (Version None)
Quarter: 2004Q1

REPORT INFORMATION
  Report Type: 
  Country: None (occurrence: None)
  Receive Date: 20040322
  Receipt Date: 20040204
  Transmission Date: 20041129
  Serious: No
  Sender: FDA-Public Use
  Company Number: SU-2004-002105

PATIENT
  Age: 76 Year
  Sex: Female
  Weight: 62.5964 kg

DRUGS (3)
  1. BENICAR HCT [Suspect]
     Indication: HYPERTENSION
     Dosage: 40.125 MG QD PO
     Route: 048
     Dates: start: 20040108
  2. BENICAR [Suspect]
     Indication: HYPERTENSION
     Dosage: 20 MG QD PO
     Route: 048
     Dates: start: 20040108
  3. COREG [Concomitant]

REACTIONS (3)
  - BLOOD PRESSURE FLUCTUATION [None]
  - HEADACHE [None]
  - HYPOAESTHESIA [None]
